FAERS Safety Report 10543408 (Version 1)
Quarter: 2014Q4

REPORT INFORMATION
  Report Type: Spontaneous
  Country: US (occurrence: None)
  Receive Date: 20141010
  Receipt Date: 20141010
  Transmission Date: 20150529
  Serious: Yes (Other)
  Sender: FDA-Public Use
  Company Number: 163-POMAL-14074070

PATIENT
  Age: 65 Year
  Sex: Female
  Weight: 73.03 kg

DRUGS (15)
  1. ACYCLOVIR (ACYCLOVIR) [Concomitant]
     Active Substance: ACYCLOVIR
  2. ASPIRINE (ACETYLSALICYLIC ACID) [Concomitant]
  3. ETODOLAC (ETODOLAC) [Concomitant]
     Active Substance: ETODOLAC
  4. VITAMIN B-6 (PYRIDOXINE HYDROCHLORIDE) [Concomitant]
  5. CLARITIN-D (NARINE REPETABS) [Concomitant]
  6. PANTOPRAZOLE (PANTOPRAZOLE) [Concomitant]
     Active Substance: PANTOPRAZOLE SODIUM
  7. FOLIC ACID (FOLIC ACID) [Concomitant]
     Active Substance: FOLIC ACID
  8. LOVASTATIN. [Concomitant]
     Active Substance: LOVASTATIN
  9. L-CARNITINE (L-CARNITINE PLUS CHROMIUM) [Concomitant]
  10. NORVASC (AMLODIPINE BESYLATE) [Concomitant]
  11. POMALYST [Suspect]
     Active Substance: POMALIDOMIDE
     Indication: PLASMA CELL MYELOMA
     Dosage: 1 IN 1 D
     Route: 048
     Dates: start: 20140715
  12. ZOMETA [Concomitant]
     Active Substance: ZOLEDRONIC ACID
  13. GINKO BILOBA (GINKO BILOBA) [Concomitant]
  14. FLUCONAZOLE (FLUCONAZOLE) [Concomitant]
     Active Substance: FLUCONAZOLE
  15. NEUPOGEN (FILGRASTIM) [Concomitant]
     Active Substance: FILGRASTIM

REACTIONS (2)
  - Dizziness [None]
  - Mobility decreased [None]

NARRATIVE: CASE EVENT DATE: 20140718
